FAERS Safety Report 24190062 (Version 1)
Quarter: 2024Q3

REPORT INFORMATION
  Report Type: Spontaneous
  Country: US (occurrence: None)
  Receive Date: 20240807
  Receipt Date: 20240807
  Transmission Date: 20241017
  Serious: No
  Sender: Public
  Company Number: None

PATIENT
  Age: 82 Year
  Sex: Female
  Weight: 67.7 kg

DRUGS (1)
  1. ATEZOLIZUMAB\HYALURONIDASE-TQJS [Suspect]
     Active Substance: ATEZOLIZUMAB\HYALURONIDASE-TQJS
     Indication: Non-small cell lung cancer
     Dosage: 1875 MG EVERY 3 WEEKS SUBCUTANEOUS
     Route: 058

REACTIONS (1)
  - Diarrhoea [None]

NARRATIVE: CASE EVENT DATE: 20240705
